FAERS Safety Report 7457900-8 (Version None)
Quarter: 2011Q2

REPORT INFORMATION
  Report Type: 
  Country: None (occurrence: None)
  Receive Date: 20110426
  Receipt Date: 20110418
  Transmission Date: 20111010
  Serious: Yes (Hospitalization)
  Sender: FDA-Public Use
  Company Number: 1000018257

PATIENT
  Age: 32 Year
  Sex: Female

DRUGS (8)
  1. NEURONTIN [Concomitant]
  2. SAVELLA [Suspect]
     Indication: FIBROMYALGIA
     Dosage: 100 MG (50 MG, 2 IN 1 D),ORAL
     Route: 048
     Dates: start: 20100707
  3. PREVACID (LANSOPRAZOLE) (LANSOPRAZOLE) [Concomitant]
  4. CIPRO (CIPROFLOXACIN) (CIPROFLOXACIN) [Concomitant]
  5. GLUCOPHAGE (METFORMIN) (METFORMIN) [Concomitant]
  6. NAPROXEN [Concomitant]
  7. CARDIZEM (DILTIAZEM HYDROCHLORIDE) (DILTIAZEM HYDROCHLORIDE) [Concomitant]
  8. COUMADIN (WARFARIN) (WARFARIN) [Concomitant]

REACTIONS (2)
  - CELLULITIS [None]
  - TACHYCARDIA [None]
